FAERS Safety Report 18907569 (Version 2)
Quarter: 2021Q1

REPORT INFORMATION
  Report Type: Spontaneous
  Country: BR (occurrence: BR)
  Receive Date: 20210217
  Receipt Date: 20210219
  Transmission Date: 20210420
  Serious: Yes (Other)
  Sender: FDA-Public Use
  Company Number: BR-ABBVIE-21P-020-3776319-00

PATIENT
  Sex: Male

DRUGS (8)
  1. RISPERIDONE. [Concomitant]
     Active Substance: RISPERIDONE
     Dosage: USED IN THE PAST
  2. LORATADINE. [Concomitant]
     Active Substance: LORATADINE
     Indication: PRODUCT USED FOR UNKNOWN INDICATION
  3. CARBAMAZEPINE. [Concomitant]
     Active Substance: CARBAMAZEPINE
     Indication: PRODUCT USED FOR UNKNOWN INDICATION
  4. DEPAKENE [Suspect]
     Active Substance: VALPROIC ACID
     Indication: SEIZURE
     Dosage: DD: 1500MG; 1 IN THE MORNING, 1 IN THE AFTERNOON AND 1 AT NIGHT
     Route: 048
  5. FRISIUM [Concomitant]
     Active Substance: CLOBAZAM
     Indication: SEIZURE
     Dosage: DD: 20MG; AT NIGHT
     Route: 048
  6. GARDENAL [Concomitant]
     Active Substance: PHENOBARBITAL
     Indication: PRODUCT USED FOR UNKNOWN INDICATION
  7. RISPERIDONE. [Concomitant]
     Active Substance: RISPERIDONE
     Indication: BEHAVIOUR DISORDER
     Dosage: DD: 3MG; MORNING/NIGHT
     Route: 048
  8. ADDERA D3 [Concomitant]
     Active Substance: CHOLECALCIFEROL
     Indication: VITAMIN D DEFICIENCY
     Dosage: 1 IN THE MORNING, FASTING, TOOK 3 TIMES WITH 30 DAYS APART AND THEN STOPPED
     Route: 048
     Dates: start: 2020

REACTIONS (6)
  - Petit mal epilepsy [Not Recovered/Not Resolved]
  - Weight decreased [Unknown]
  - Tooth impacted [Unknown]
  - Weight increased [Unknown]
  - Seizure [Recovered/Resolved]
  - Memory impairment [Not Recovered/Not Resolved]

NARRATIVE: CASE EVENT DATE: 2008
